FAERS Safety Report 4915394-8 (Version None)
Quarter: 2006Q1

REPORT INFORMATION
  Report Type: 
  Country: None (occurrence: None)
  Receive Date: 20060113
  Receipt Date: 20051003
  Transmission Date: 20060701
  Serious: No
  Sender: FDA-Public Use
  Company Number: 2005SP003354

PATIENT
  Age: 63 Year
  Sex: Male
  Weight: 92.9874 kg

DRUGS (5)
  1. LUNESTA [Suspect]
     Indication: BACK PAIN
     Dosage: 1 MG;HS;ORAL
     Route: 048
     Dates: start: 20050926, end: 20051001
  2. LUNESTA [Suspect]
     Indication: INSOMNIA
     Dosage: 1 MG;HS;ORAL
     Route: 048
     Dates: start: 20050926, end: 20051001
  3. AMBIEN [Concomitant]
  4. FLEXERIL [Concomitant]
  5. VICODIN [Concomitant]

REACTIONS (2)
  - DYSGEUSIA [None]
  - INSOMNIA [None]
